FAERS Safety Report 21465037 (Version 2)
Quarter: 2023Q2

REPORT INFORMATION
  Report Type: Spontaneous
  Country: RU (occurrence: None)
  Receive Date: 20221017
  Receipt Date: 20230630
  Transmission Date: 20230721
  Serious: Yes (Hospitalization, Other)
  Sender: FDA-Public Use
  Company Number: RU-ROCHE-3199770

PATIENT
  Age: 73 Year
  Sex: Male

DRUGS (7)
  1. OBINUTUZUMAB [Suspect]
     Active Substance: OBINUTUZUMAB
     Indication: Follicular lymphoma stage IV
     Dosage: G-CHOP THERAPY WAS PERFORMED FOR 6 CYCLES?THEN CONSOLIDATION REGIMEN: OBINUTUZUMAB 1000 MG EVERY 8 W
     Route: 042
     Dates: end: 201905
  2. CYCLOPHOSPHAMIDE [Suspect]
     Active Substance: CYCLOPHOSPHAMIDE
     Indication: Follicular lymphoma stage IV
     Route: 065
  3. DOXORUBICIN [Suspect]
     Active Substance: DOXORUBICIN
     Indication: Follicular lymphoma stage IV
     Route: 065
  4. PREDNISONE [Suspect]
     Active Substance: PREDNISONE
     Indication: Follicular lymphoma stage IV
     Route: 065
  5. VINCRISTINE [Suspect]
     Active Substance: VINCRISTINE
     Indication: Follicular lymphoma stage IV
     Route: 065
  6. SPUTNIK V [Concomitant]
     Dates: start: 20210322
  7. SPUTNIK V [Concomitant]
     Dates: start: 20210405

REACTIONS (3)
  - Coronavirus infection [Unknown]
  - Pneumonia [Unknown]
  - Breast hyperplasia [Unknown]
